FAERS Safety Report 8798543 (Version 7)
Quarter: 2013Q1

REPORT INFORMATION
  Report Type: Report from Study
  Country: JP (occurrence: JP)
  Receive Date: 20120920
  Receipt Date: 20130220
  Transmission Date: 20140127
  Serious: Yes (Hospitalization, Other)
  Sender: FDA-Public Use
  Company Number: JP-UCBSA-066588

PATIENT
  Age: 70 Year
  Sex: Female

DRUGS (15)
  1. CERTOLIZUMAB PEGOL [Suspect]
     Indication: RHEUMATOID ARTHRITIS
     Route: 058
     Dates: start: 20091125, end: 20120829
  2. CERTOLIZUMAB PEGOL [Suspect]
     Indication: RHEUMATOID ARTHRITIS
     Route: 058
     Dates: start: 20090513, end: 20091111
  3. RHEUMATREX [Suspect]
     Indication: RHEUMATOID ARTHRITIS
     Route: 048
     Dates: start: 20111222
  4. PRANOPROFEN [Concomitant]
     Indication: CONJUNCTIVITIS ALLERGIC
     Dosage: QS PRN
     Route: 047
     Dates: start: 20120214
  5. SODIUM RABEPRAZOLE [Concomitant]
     Indication: GASTRITIS
     Route: 048
     Dates: start: 20120323
  6. SODIUM RABEPRAZOLE [Concomitant]
     Indication: GASTROOESOPHAGEAL REFLUX DISEASE
     Route: 048
     Dates: start: 20120323
  7. TRANILAST [Concomitant]
     Indication: CONJUNCTIVITIS ALLERGIC
     Dosage: QS PRN
     Route: 047
     Dates: start: 20120214
  8. KETOPROFEN [Concomitant]
     Indication: RHEUMATOID ARTHRITIS
     Dosage: QS PRN
     Route: 062
     Dates: start: 20120606
  9. RAMELTEON [Concomitant]
     Indication: INSOMNIA
     Route: 048
     Dates: start: 20120612
  10. MAGNESIUM OXIDE [Concomitant]
     Indication: CONSTIPATION PROPHYLAXIS
     Route: 048
     Dates: start: 20120120
  11. NITRAZEPAM [Concomitant]
     Route: 048
     Dates: start: 20120726
  12. BROTIZOLAM [Concomitant]
     Indication: INSOMNIA
     Route: 048
     Dates: start: 20120827
  13. HEPARINOID [Concomitant]
     Indication: ASTEATOSIS
     Dosage: QS PRN
     Route: 061
     Dates: start: 20120806
  14. AMOROLFINE HYDROCHLORIDE [Concomitant]
     Indication: TINEA PEDIS
     Dosage: QS PRN
     Route: 061
     Dates: start: 20120825
  15. LULICONAZOLE [Concomitant]
     Indication: TINEA PEDIS
     Dosage: Q.S
     Route: 061
     Dates: start: 20120825

REACTIONS (1)
  - Malignant melanoma [Recovered/Resolved]
